FAERS Safety Report 8454878-5 (Version None)
Quarter: 2012Q2

REPORT INFORMATION
  Report Type: 
  Country: None (occurrence: None)
  Receive Date: 20120614
  Receipt Date: 20120607
  Transmission Date: 20120825
  Serious: Yes (Hospitalization)
  Sender: FDA-Public Use
  Company Number: 2012SP030056

PATIENT
  Age: 7 Year
  Sex: Female
  Weight: 20 kg

DRUGS (4)
  1. AMOXICILLIN [Suspect]
     Indication: PRODUCT USED FOR UNKNOWN INDICATION
     Dosage: 1 DF;QD;
     Dates: start: 20111006
  2. HELICIDINE (HELICIDINE) [Suspect]
     Indication: PRODUCT USED FOR UNKNOWN INDICATION
  3. TOPLEXIL (APLEXIL) [Suspect]
     Indication: BRONCHITIS
     Dosage: ;PO
     Route: 048
     Dates: start: 20111001, end: 20111006
  4. BETAMETHASONE [Suspect]
     Indication: PRODUCT USED FOR UNKNOWN INDICATION
     Dates: start: 20111006

REACTIONS (9)
  - POSTURE ABNORMAL [None]
  - REFLEXES ABNORMAL [None]
  - TONGUE PARALYSIS [None]
  - OROPHARYNGEAL PAIN [None]
  - DYSTONIA [None]
  - DYSPHAGIA [None]
  - VIITH NERVE PARALYSIS [None]
  - LUNG DISORDER [None]
  - MYCOPLASMA TEST POSITIVE [None]
